FAERS Safety Report 7898737-5 (Version None)
Quarter: 2011Q4

REPORT INFORMATION
  Report Type: 
  Country: None (occurrence: None)
  Receive Date: 20111107
  Receipt Date: 20110617
  Transmission Date: 20120403
  Serious: No
  Sender: FDA-Public Use
  Company Number: US-ABBOTT-11P-163-0733811-00

PATIENT
  Sex: Female
  Weight: 81.72 kg

DRUGS (5)
  1. WELLBUTRIN XL [Concomitant]
     Indication: DEPRESSION
  2. MULTI-VITAMIN [Concomitant]
     Indication: PRODUCT USED FOR UNKNOWN INDICATION
  3. TRICOR [Suspect]
     Indication: BLOOD TRIGLYCERIDES INCREASED
     Route: 048
     Dates: start: 20020101
  4. PREMARIN [Concomitant]
     Indication: HOT FLUSH
  5. LEVOXYL [Concomitant]
     Indication: HYPOTHYROIDISM

REACTIONS (1)
  - BLOOD TRIGLYCERIDES INCREASED [None]
